FAERS Safety Report 8256658 (Version 3)
Quarter: 2016Q1

REPORT INFORMATION
  Report Type: Report from Study
  Country: US (occurrence: US)
  Receive Date: 20111121
  Receipt Date: 20160129
  Transmission Date: 20160526
  Serious: Yes (Hospitalization, Other)
  Sender: FDA-Public Use
  Company Number: US-ROCHE-1011179

PATIENT
  Age: 60 Year
  Sex: Male

DRUGS (5)
  1. TRASTUZUMAB [Suspect]
     Active Substance: TRASTUZUMAB
     Dosage: OVER 30-90 MINUTES ON DAYS 1,8, AND 15
     Route: 042
  2. CARBOPLATIN. [Suspect]
     Active Substance: CARBOPLATIN
     Indication: TRANSITIONAL CELL CARCINOMA
     Dosage: 5 AUC OVER 15 MINUTES ON DAY 1
     Route: 042
     Dates: start: 20031223
  3. TRASTUZUMAB [Suspect]
     Active Substance: TRASTUZUMAB
     Indication: TRANSITIONAL CELL CARCINOMA
     Dosage: LOADING DOSE
     Route: 042
     Dates: start: 20031223
  4. PACLITAXEL. [Suspect]
     Active Substance: PACLITAXEL
     Indication: TRANSITIONAL CELL CARCINOMA
     Dosage: OVER 3 HOURS ON DAY 1
     Route: 042
     Dates: start: 20031223
  5. GEMCITABINE [Suspect]
     Active Substance: GEMCITABINE\GEMCITABINE HYDROCHLORIDE
     Indication: TRANSITIONAL CELL CARCINOMA
     Dosage: OVER 30 MINUTES ON DAYA 1 AND 8
     Route: 042
     Dates: start: 20031223

REACTIONS (5)
  - Anaemia [Recovering/Resolving]
  - Muscular weakness [Recovering/Resolving]
  - Cellulitis of male external genital organ [Recovering/Resolving]
  - Neutropenic infection [Recovering/Resolving]
  - Groin abscess [Recovering/Resolving]

NARRATIVE: CASE EVENT DATE: 20031224
